FAERS Safety Report 5457092-0 (Version None)
Quarter: 2007Q3

REPORT INFORMATION
  Report Type: 
  Country: None (occurrence: None)
  Receive Date: 20070918
  Receipt Date: 20070102
  Transmission Date: 20080115
  Serious: No
  Sender: FDA-Public Use
  Company Number: US-ASTRAZENECA-2007UW00066

PATIENT
  Age: 51 Year
  Sex: Female
  Weight: 62.6 kg

DRUGS (2)
  1. SEROQUEL [Suspect]
     Indication: SCHIZOPHRENIA
     Route: 048
  2. SEROQUEL [Suspect]
     Route: 048

REACTIONS (4)
  - DRY MOUTH [None]
  - DYSPHONIA [None]
  - SOMNOLENCE [None]
  - WEIGHT INCREASED [None]
